FAERS Safety Report 12704843 (Version 1)
Quarter: 2016Q3

REPORT INFORMATION
  Report Type: Spontaneous
  Country: US (occurrence: US)
  Receive Date: 20160831
  Receipt Date: 20160831
  Transmission Date: 20161109
  Serious: No
  Sender: FDA-Public Use
  Company Number: PHHY2016US119182

PATIENT
  Age: 50 Year
  Sex: Female

DRUGS (1)
  1. CAMBIA [Suspect]
     Active Substance: DICLOFENAC POTASSIUM
     Indication: MIGRAINE
     Dosage: 50 MG, UNK(1 PACKET MIXED WITH 1-2 OUNCES AND DRANK IMMEDIATELY)
     Route: 048
     Dates: start: 20160825

REACTIONS (3)
  - Dysphonia [Unknown]
  - Throat irritation [Unknown]
  - Oropharyngeal pain [Unknown]

NARRATIVE: CASE EVENT DATE: 20160825
